FAERS Safety Report 18726833 (Version 1)
Quarter: 2021Q1

REPORT INFORMATION
  Report Type: Spontaneous
  Country: FR (occurrence: FR)
  Receive Date: 20210111
  Receipt Date: 20210111
  Transmission Date: 20210419
  Serious: Yes (Life-Threatening, Hospitalization, Other)
  Sender: FDA-Public Use
  Company Number: FR-PURDUE-USA-2020-0196184

PATIENT
  Age: 58 Year

DRUGS (2)
  1. NON?PMN BUPRENORPHINE [Suspect]
     Active Substance: BUPRENORPHINE
     Indication: SUICIDE ATTEMPT
     Dosage: 70 DF (DOSAGE FORM TOTAL), UNK
     Route: 048
  2. NALOXONE [Concomitant]
     Active Substance: NALOXONE
     Indication: TOXICITY TO VARIOUS AGENTS
     Dosage: UNK
     Route: 065

REACTIONS (7)
  - Overdose [Unknown]
  - Nervous system disorder [Unknown]
  - Pneumonitis [Unknown]
  - Toxicity to various agents [Unknown]
  - Coma [Unknown]
  - Suicide attempt [Unknown]
  - Respiratory depression [Unknown]
